FAERS Safety Report 8518471-8 (Version None)
Quarter: 2012Q3

REPORT INFORMATION
  Report Type: 
  Country: None (occurrence: None)
  Receive Date: 20120718
  Receipt Date: 20120328
  Transmission Date: 20120928
  Serious: No
  Sender: FDA-Public Use
  Company Number: US-BRISTOL-MYERS SQUIBB COMPANY-16484255

PATIENT
  Age: 71 Year
  Sex: Female

DRUGS (1)
  1. COUMADIN [Suspect]
     Indication: THROMBOSIS PROPHYLAXIS
     Dosage: DOSE INCRESED TO 7.5MG DAILY ON MON/WED/FRIDAY, AND 5 MG DAILY ALL OTHER DAYS

REACTIONS (1)
  - INTERNATIONAL NORMALISED RATIO DECREASED [None]
